FAERS Safety Report 10141936 (Version 2)
Quarter: 2014Q2

REPORT INFORMATION
  Report Type: Spontaneous
  Country: EC (occurrence: EC)
  Receive Date: 20140429
  Receipt Date: 20140429
  Transmission Date: 20141212
  Serious: Yes (Hospitalization, Other)
  Sender: FDA-Public Use
  Company Number: EC-TAKEDA-2014TJP005281

PATIENT
  Age: 75 Year
  Sex: Male

DRUGS (1)
  1. ACTOS TABLETS 15 [Suspect]
     Indication: TYPE 2 DIABETES MELLITUS
     Dosage: 15 MG, QD
     Route: 048
     Dates: start: 2010, end: 201402

REACTIONS (2)
  - Bladder cancer [Unknown]
  - Haematuria [Unknown]
